FAERS Safety Report 4611766-X (Version None)
Quarter: 2005Q1

REPORT INFORMATION
  Report Type: 
  Country: None (occurrence: None)
  Receive Date: 20050317
  Receipt Date: 20050303
  Transmission Date: 20050727
  Serious: Yes (Other)
  Sender: FDA-Public Use
  Company Number: PHEH2005US02775

PATIENT
  Age: 18 Month
  Sex: Female

DRUGS (1)
  1. ELIDEL [Suspect]
     Route: 061

REACTIONS (4)
  - CHEST X-RAY ABNORMAL [None]
  - PYREXIA [None]
  - SPLENOMEGALY [None]
  - T-CELL LYMPHOMA STAGE III [None]
